FAERS Safety Report 13372791 (Version 1)
Quarter: 2017Q1

REPORT INFORMATION
  Report Type: Spontaneous
  Country: US (occurrence: US)
  Receive Date: 20170325
  Receipt Date: 20170325
  Transmission Date: 20170429
  Serious: Yes (Other)
  Sender: FDA-Public Use
  Company Number: None

PATIENT
  Age: 30 Year
  Sex: Female
  Weight: 74.25 kg

DRUGS (3)
  1. WOMEN^S COMPLETE MULTIVITAMIN [Concomitant]
  2. AMOXICILLIN. [Suspect]
     Active Substance: AMOXICILLIN
     Indication: EAR INFECTION
     Dosage: ?          QUANTITY:20 TABLET(S);?
     Route: 048
     Dates: start: 20170323, end: 20170325
  3. ORTHO CYCLEN [Concomitant]
     Active Substance: ETHINYL ESTRADIOL\NORGESTIMATE

REACTIONS (8)
  - Lethargy [None]
  - Flatulence [None]
  - Nightmare [None]
  - Fatigue [None]
  - Abnormal dreams [None]
  - Abdominal pain [None]
  - Insomnia [None]
  - Chills [None]

NARRATIVE: CASE EVENT DATE: 20170323
